FAERS Safety Report 6792859-8 (Version None)
Quarter: 2010Q2

REPORT INFORMATION
  Report Type: 
  Country: None (occurrence: None)
  Receive Date: 20100624
  Receipt Date: 20081027
  Transmission Date: 20101027
  Serious: No
  Sender: FDA-Public Use
  Company Number: US-PFIZER INC-2008090554

PATIENT
  Sex: Male

DRUGS (2)
  1. GENOTROPIN [Suspect]
  2. GENERAL NUTRIENTS [Suspect]

REACTIONS (1)
  - RASH [None]
